FAERS Safety Report 7979267-9 (Version None)
Quarter: 2011Q4

REPORT INFORMATION
  Report Type: 
  Country: None (occurrence: None)
  Receive Date: 20111214
  Receipt Date: 20111214
  Transmission Date: 20120403
  Serious: No
  Sender: FDA-Public Use
  Company Number: None

PATIENT
  Sex: Male
  Weight: 60 kg

DRUGS (1)
  1. PEGINTERFERON ALFA-2A [Suspect]
     Indication: HEPATITIS C
     Dosage: 180 MCG
     Route: 058
     Dates: start: 20110715, end: 20111101

REACTIONS (14)
  - INJECTION SITE SWELLING [None]
  - OEDEMA PERIPHERAL [None]
  - DRUG ABUSE [None]
  - CENTRAL NERVOUS SYSTEM LESION [None]
  - NECROTISING FASCIITIS [None]
  - NEUTROPENIA [None]
  - ANGIOPATHY [None]
  - ANTINEUTROPHIL CYTOPLASMIC ANTIBODY INCREASED [None]
  - PYREXIA [None]
  - THROMBOSIS [None]
  - TOXICITY TO VARIOUS AGENTS [None]
  - SUPERIOR SAGITTAL SINUS THROMBOSIS [None]
  - CEREBRAL INFARCTION [None]
  - INJECTION SITE PAIN [None]
